FAERS Safety Report 17553705 (Version 2)
Quarter: 2020Q1

REPORT INFORMATION
  Report Type: Spontaneous
  Country: US (occurrence: US)
  Receive Date: 20200318
  Receipt Date: 20200324
  Transmission Date: 20200409
  Serious: No
  Sender: FDA-Public Use
  Company Number: US-BIOGEN-2020BI00850013

PATIENT
  Sex: Female

DRUGS (3)
  1. TECFIDERA [Suspect]
     Active Substance: DIMETHYL FUMARATE
     Indication: MULTIPLE SCLEROSIS
     Route: 065
     Dates: start: 20190926, end: 20191101
  2. TECFIDERA [Suspect]
     Active Substance: DIMETHYL FUMARATE
     Route: 048
     Dates: start: 20131018, end: 20150211
  3. TECFIDERA [Suspect]
     Active Substance: DIMETHYL FUMARATE
     Route: 048
     Dates: start: 20130618, end: 20131004

REACTIONS (6)
  - General physical health deterioration [Not Recovered/Not Resolved]
  - Anxiety [Not Recovered/Not Resolved]
  - Gait disturbance [Not Recovered/Not Resolved]
  - Feeling jittery [Unknown]
  - Nervousness [Not Recovered/Not Resolved]
  - Visual impairment [Unknown]
